FAERS Safety Report 7741364-0 (Version None)
Quarter: 2011Q3

REPORT INFORMATION
  Report Type: 
  Country: None (occurrence: None)
  Receive Date: 20110909
  Receipt Date: 20110902
  Transmission Date: 20111222
  Serious: No
  Sender: FDA-Public Use
  Company Number: PR-PFIZER INC-2007014996

PATIENT

DRUGS (1)
  1. LIPITOR [Suspect]

REACTIONS (1)
  - DIZZINESS [None]
